FAERS Safety Report 22055712 (Version 1)
Quarter: 2023Q1

REPORT INFORMATION
  Report Type: Spontaneous
  Country: GB (occurrence: GB)
  Receive Date: 20230302
  Receipt Date: 20230302
  Transmission Date: 20230418
  Serious: Yes (Hospitalization)
  Sender: FDA-Public Use
  Company Number: GB-VERTEX PHARMACEUTICALS-2023-003100

PATIENT
  Sex: Male

DRUGS (6)
  1. ELEXACAFTOR\IVACAFTOR\TEZACAFTOR [Suspect]
     Active Substance: ELEXACAFTOR\IVACAFTOR\TEZACAFTOR
     Indication: Cystic fibrosis
     Dosage: UNKNOWN DOSAGE REGIMEN
     Route: 048
  2. ELEXACAFTOR\IVACAFTOR\TEZACAFTOR [Suspect]
     Active Substance: ELEXACAFTOR\IVACAFTOR\TEZACAFTOR
     Dosage: HALF DOSE
     Route: 048
  3. KALYDECO [Suspect]
     Active Substance: IVACAFTOR
     Indication: Cystic fibrosis
     Dosage: ONCE DAILY (75 MG IVACAFTOR))
     Route: 048
  4. PROMIXIN [Concomitant]
  5. DORNASE ALFA [Concomitant]
     Active Substance: DORNASE ALFA
     Dosage: UNKNOWN DOSAGE REGIMEN
  6. DORNASE ALFA [Concomitant]
     Active Substance: DORNASE ALFA
     Dosage: DOUBLE DOSE

REACTIONS (2)
  - Hospitalisation [Unknown]
  - Attention deficit hyperactivity disorder [Unknown]
